FAERS Safety Report 8537927-5 (Version None)
Quarter: 2012Q3

REPORT INFORMATION
  Report Type: 
  Country: None (occurrence: None)
  Receive Date: 20120725
  Receipt Date: 20120717
  Transmission Date: 20120928
  Serious: Yes (Hospitalization, Other)
  Sender: FDA-Public Use
  Company Number: JP-GLAXOSMITHKLINE-B0816056A

PATIENT
  Age: 71 Year
  Sex: Female
  Weight: 37 kg

DRUGS (2)
  1. CEFTRIAXONE [Concomitant]
     Dosage: 1G PER DAY
  2. VALTREX [Suspect]
     Dosage: 3000MG PER DAY
     Route: 048

REACTIONS (8)
  - MENINGITIS [None]
  - CSF CELL COUNT INCREASED [None]
  - ALTERED STATE OF CONSCIOUSNESS [None]
  - SPEECH DISORDER [None]
  - PYREXIA [None]
  - DIZZINESS [None]
  - DYSSTASIA [None]
  - ENCEPHALOPATHY [None]
